FAERS Safety Report 5213007-1 (Version None)
Quarter: 2007Q1

REPORT INFORMATION
  Report Type: 
  Country: None (occurrence: None)
  Receive Date: 20070117
  Receipt Date: 20070117
  Transmission Date: 20070707
  Serious: Yes (Hospitalization)
  Sender: FDA-Public Use
  Company Number: None

PATIENT
  Age: 72 Year
  Sex: Male

DRUGS (10)
  1. ENALAPRIL 2.5 MG PO BID [Suspect]
     Indication: CARDIAC FAILURE CONGESTIVE
     Route: 048
  2. ENALAPRIL 2.5 MG PO BID [Suspect]
     Indication: HYPERTENSION
     Route: 048
  3. TRIAMTERENE AND HYDROCHLOROTHIAZIDE [Suspect]
     Indication: HYPERTENSION
  4. ADVAIR DISKUS 100/50 [Concomitant]
  5. ENALAPRIL MALEATE [Concomitant]
  6. FERROUS SULFATE TAB [Concomitant]
  7. HYDROXYZINE HCL [Concomitant]
  8. LEVALBUTEROL TART [Concomitant]
  9. LORATADINE [Concomitant]
  10. METOPROLOL TARTRATE [Concomitant]

REACTIONS (3)
  - HYPERKALAEMIA [None]
  - HYPONATRAEMIA [None]
  - PNEUMONIA [None]
